FAERS Safety Report 24238212 (Version 1)
Quarter: 2024Q3

REPORT INFORMATION
  Report Type: Report from Study
  Country: US (occurrence: None)
  Receive Date: 20240822
  Receipt Date: 20240822
  Transmission Date: 20241017
  Serious: Yes (Hospitalization)
  Sender: ASTRAZENECA
  Company Number: 2023A094428

PATIENT
  Sex: Female

DRUGS (1)
  1. FASENRA [Suspect]
     Active Substance: BENRALIZUMAB
     Indication: Asthma
     Route: 058

REACTIONS (4)
  - Enzyme level increased [Not Recovered/Not Resolved]
  - Urinary tract infection [Unknown]
  - Dysphagia [Not Recovered/Not Resolved]
  - Pharyngeal swelling [Not Recovered/Not Resolved]
